FAERS Safety Report 5125864-8 (Version None)
Quarter: 2006Q4

REPORT INFORMATION
  Report Type: 
  Country: None (occurrence: None)
  Receive Date: 20061012
  Receipt Date: 20060809
  Transmission Date: 20070319
  Serious: Yes (Other)
  Sender: FDA-Public Use
  Company Number: US-GLAXOSMITHKLINE-A0616059A

PATIENT
  Age: 76 Year
  Sex: Female

DRUGS (5)
  1. AVANDIA [Suspect]
     Indication: DIABETES MELLITUS
     Dosage: 4MG PER DAY
     Route: 048
     Dates: start: 20060608, end: 20060808
  2. PLAVIX [Concomitant]
     Dosage: 75MG PER DAY
     Route: 048
  3. GLYBURIDE [Concomitant]
     Dosage: 100MG TWICE PER DAY
     Route: 048
  4. ZESTORETIC [Concomitant]
     Route: 048
  5. CADUET [Concomitant]

REACTIONS (3)
  - DIABETIC EYE DISEASE [None]
  - MACULAR OEDEMA [None]
  - RETINOPATHY [None]
